FAERS Safety Report 16957178 (Version 3)
Quarter: 2020Q1

REPORT INFORMATION
  Report Type: Spontaneous
  Country: NL (occurrence: NL)
  Receive Date: 20191024
  Receipt Date: 20200205
  Transmission Date: 20200409
  Serious: Yes (Other)
  Sender: FDA-Public Use
  Company Number: NL-PFIZER INC-2019454054

PATIENT
  Age: 7 Year
  Sex: Male

DRUGS (6)
  1. IMIPENEM AND CILASTATIN [Suspect]
     Active Substance: CILASTATIN SODIUM\IMIPENEM
     Indication: MASTOIDITIS
     Dosage: UNK, DAILY (60/60 MG/KG/DAY IN 2-4 DOSES)
     Route: 042
  2. CLOFAZIMINE [Suspect]
     Active Substance: CLOFAZIMINE
     Indication: MASTOIDITIS
     Dosage: UNK, 1X/DAY(50MG ONCE DAILY; IF WEIGHT }40KG, THEN 100MG ONCE DAILY)
     Route: 048
  3. AZITHROMYCIN ANHYDROUS. [Suspect]
     Active Substance: AZITHROMYCIN ANHYDROUS
     Indication: MASTOIDITIS
     Dosage: 10 MG/KG, DAILY
     Route: 048
  4. IMIPENEM AND CILASTATIN [Suspect]
     Active Substance: CILASTATIN SODIUM\IMIPENEM
     Indication: MASTOIDITIS
     Dosage: UNK, 3X/DAY (5/5 MG/ML; THREE DROPS THREE TIMES DAILY)
     Route: 061
  5. TIGECYCLINE. [Suspect]
     Active Substance: TIGECYCLINE
     Indication: MASTOIDITIS
     Dosage: 2.4 MG/KG, DAILY (2.4 MG/KG/DAY IN 2 DOSES)
     Route: 042
  6. TIGECYCLINE. [Suspect]
     Active Substance: TIGECYCLINE
     Indication: MASTOIDITIS
     Dosage: 5 MG/ML, 3X/DAY (5 MG/ML; THREE DROPS THREE TIMES DAILY)
     Route: 061

REACTIONS (6)
  - Vomiting [Unknown]
  - Hepatotoxicity [Unknown]
  - Hypertriglyceridaemia [Unknown]
  - Bone marrow failure [Unknown]
  - Nausea [Unknown]
  - Dermatitis [Unknown]
